FAERS Safety Report 5156211-3 (Version None)
Quarter: 2006Q4

REPORT INFORMATION
  Report Type: 
  Country: None (occurrence: None)
  Receive Date: 20061114
  Receipt Date: 20061026
  Transmission Date: 20070319
  Serious: Yes (Other)
  Sender: FDA-Public Use
  Company Number: DSA_81741_2006

PATIENT
  Age: 17 Year
  Sex: Male
  Weight: 58.0604 kg

DRUGS (4)
  1. XYREM [Suspect]
     Indication: NARCOLEPSY
     Dosage: 3 G TWICE NIGHTLY PO
     Route: 048
     Dates: start: 20060101, end: 20061024
  2. XYREM [Suspect]
     Indication: NARCOLEPSY
     Dosage: 3 G NIGHTLY PO
     Route: 048
     Dates: start: 20061025
  3. XYREM [Suspect]
     Indication: NARCOLEPSY
     Dosage: 1.5 G TWICE NIGHTLY PO
     Route: 048
     Dates: start: 20060801, end: 20060101
  4. ADDERALL 10 [Concomitant]

REACTIONS (6)
  - DIZZINESS [None]
  - GAIT DISTURBANCE [None]
  - HYPERREFLEXIA [None]
  - HYPOAESTHESIA [None]
  - NUCLEAR MAGNETIC RESONANCE IMAGING BRAIN ABNORMAL [None]
  - VISION BLURRED [None]
